FAERS Safety Report 23112936 (Version 1)
Quarter: 2023Q4

REPORT INFORMATION
  Report Type: Spontaneous
  Country: DK (occurrence: DK)
  Receive Date: 20231027
  Receipt Date: 20231027
  Transmission Date: 20240109
  Serious: Yes (Life-Threatening, Hospitalization)
  Sender: FDA-Public Use
  Company Number: None

PATIENT
  Age: 51 Year
  Sex: Male
  Weight: 104 kg

DRUGS (9)
  1. WEGOVY [Suspect]
     Active Substance: SEMAGLUTIDE
     Indication: Overweight
     Dosage: 2.4 MG, QW
     Dates: start: 20230831
  2. PANTOPRAZOLE SODIUM [Concomitant]
     Active Substance: PANTOPRAZOLE SODIUM
     Indication: Gastrooesophageal reflux disease
     Dosage: 40 MG, QD
     Dates: start: 20191217, end: 20230910
  3. PROTOPIC [Concomitant]
     Active Substance: TACROLIMUS
     Indication: Psoriasis
     Dosage: 1 DF, AS NECESSARY, BUT MAX TWICE A DAY STRENGTH: 0.1 %
     Dates: start: 20220617
  4. OVISON [Concomitant]
     Indication: Psoriasis
     Dosage: 1 DF, AS NECESSARY, BUT MAX ONCE A DAY. ON THE BODY.  STRENGTH: 1 MG/G
     Dates: start: 20220617
  5. ELOCON [MOMETASONE FUROATE] [Concomitant]
     Indication: Psoriasis
     Dosage: 1 DF, AS NECESSARY, BUT MAX ONCE A DAY. STRENGTH: 0.1 %
     Route: 003
     Dates: start: 20220617
  6. EZETIMIBE [Concomitant]
     Active Substance: EZETIMIBE
     Indication: Hypercholesterolaemia
     Dosage: 10 MG, QD
     Dates: start: 20200122
  7. TRAMADOL [Concomitant]
     Active Substance: TRAMADOL\TRAMADOL HYDROCHLORIDE
     Indication: Pain
     Dosage: 100 MG
     Dates: start: 20230102, end: 20230910
  8. LOSARTAN [Concomitant]
     Active Substance: LOSARTAN
     Indication: Hypertension
     Dosage: 50 MG, QD
     Dates: start: 20220112
  9. ASPIRIN [Concomitant]
     Active Substance: ASPIRIN
     Indication: Thrombosis prophylaxis
     Dosage: 75 MG, QD
     Dates: start: 20190314

REACTIONS (2)
  - Malaise [Unknown]
  - Acute myocardial infarction [Recovered/Resolved with Sequelae]

NARRATIVE: CASE EVENT DATE: 20230909
